FAERS Safety Report 6943930-9 (Version None)
Quarter: 2010Q3

REPORT INFORMATION
  Report Type: 
  Country: None (occurrence: None)
  Receive Date: 20100826
  Receipt Date: 20100818
  Transmission Date: 20110219
  Serious: Yes (Life-Threatening)
  Sender: FDA-Public Use
  Company Number: B0671603A

PATIENT
  Sex: Female

DRUGS (2)
  1. AUGMENTIN '125' [Suspect]
     Indication: PNEUMONIA
     Route: 065
     Dates: start: 20100728, end: 20100728
  2. SODIUM CHLORIDE 0.9% [Concomitant]

REACTIONS (2)
  - MYALGIA [None]
  - PYREXIA [None]
